FAERS Safety Report 8281626-4 (Version None)
Quarter: 2012Q2

REPORT INFORMATION
  Report Type: 
  Country: None (occurrence: None)
  Receive Date: 20120413
  Receipt Date: 20120403
  Transmission Date: 20120825
  Serious: Yes (Other)
  Sender: FDA-Public Use
  Company Number: US-JNJFOC-20120202440

PATIENT
  Sex: Female
  Weight: 57.15 kg

DRUGS (17)
  1. ATIVAN [Concomitant]
     Route: 048
  2. DIGOXIN [Concomitant]
     Route: 048
  3. HYDROXYZINE [Concomitant]
     Route: 065
  4. METOPROLOL TARTRATE [Concomitant]
     Route: 048
  5. PREDNISONE TAB [Concomitant]
     Route: 048
  6. RECLAST [Concomitant]
     Dosage: 5 MG/ 100 ML INTRAVENOUS
     Route: 042
  7. ASPIRIN [Concomitant]
     Route: 048
  8. PLAQUENIL [Concomitant]
     Route: 048
  9. PROTONIX [Concomitant]
     Route: 048
  10. FLAXSEED OIL [Concomitant]
     Route: 048
  11. POTASSIUM CHLORIDE [Concomitant]
     Route: 048
  12. MULTI-VITAMINS [Concomitant]
     Route: 048
  13. REMICADE [Suspect]
     Indication: RHEUMATOID ARTHRITIS
     Route: 042
  14. CALCIUM CARBONATE [Concomitant]
     Route: 065
  15. SYNTHROID [Concomitant]
     Route: 048
  16. REMICADE [Suspect]
     Indication: CROHN'S DISEASE
     Route: 042
  17. VITAMIN D [Concomitant]
     Route: 048

REACTIONS (1)
  - HERPES ZOSTER OPHTHALMIC [None]
